FAERS Safety Report 18972613 (Version 1)
Quarter: 2021Q1

REPORT INFORMATION
  Report Type: Spontaneous
  Country: US (occurrence: US)
  Receive Date: 20210304
  Receipt Date: 20210304
  Transmission Date: 20210420
  Serious: Yes (Other)
  Sender: FDA-Public Use
  Company Number: None

PATIENT
  Age: 30 Year
  Sex: Female
  Weight: 84 kg

DRUGS (2)
  1. BYDUREON [Suspect]
     Active Substance: EXENATIDE
     Indication: TYPE 2 DIABETES MELLITUS
     Dosage: ?          OTHER FREQUENCY:7 DAYS;?
     Route: 058
     Dates: start: 20201013, end: 20210128
  2. GLIPIZIDE 10MG [Concomitant]
     Active Substance: GLIPIZIDE

REACTIONS (2)
  - Injection site nodule [None]
  - Abscess limb [None]

NARRATIVE: CASE EVENT DATE: 20210302
